FAERS Safety Report 6248042-8 (Version None)
Quarter: 2009Q2

REPORT INFORMATION
  Report Type: 
  Country: None (occurrence: None)
  Receive Date: 20090626
  Receipt Date: 20090624
  Transmission Date: 20091009
  Serious: Yes (Life-Threatening, Hospitalization, Disabling)
  Sender: FDA-Public Use
  Company Number: US-B.I. PHARMACEUTICALS,INC./RIDGEFIELD-2009-BP-06822BP

PATIENT
  Sex: Female
  Weight: 63.9 kg

DRUGS (2)
  1. VIRAMUNE [Suspect]
     Indication: HIV INFECTION
     Dates: start: 20090403, end: 20090502
  2. TRUVADA [Concomitant]
     Indication: HIV INFECTION
     Dates: start: 20090403

REACTIONS (6)
  - BLISTER [None]
  - OROPHARYNGEAL BLISTERING [None]
  - PYREXIA [None]
  - RASH [None]
  - STEVENS-JOHNSON SYNDROME [None]
  - TONGUE BLISTERING [None]
